FAERS Safety Report 5029160-9 (Version None)
Quarter: 2006Q2

REPORT INFORMATION
  Report Type: 
  Country: None (occurrence: None)
  Receive Date: 20060615
  Receipt Date: 20060615
  Transmission Date: 20061013
  Serious: No
  Sender: FDA-Public Use
  Company Number: None

PATIENT
  Sex: Male
  Weight: 90.7194 kg

DRUGS (1)
  1. MALARONE [Suspect]
     Indication: MALARIA PROPHYLAXIS
     Dosage: 1 TABLET DAILY OROPHARINGE
     Route: 049
     Dates: start: 20060521, end: 20060524

REACTIONS (4)
  - BLISTER [None]
  - DRUG HYPERSENSITIVITY [None]
  - PRURITUS [None]
  - RASH [None]
